FAERS Safety Report 25259395 (Version 1)
Quarter: 2025Q2

REPORT INFORMATION
  Report Type: Spontaneous
  Country: US (occurrence: US)
  Receive Date: 20250501
  Receipt Date: 20250501
  Transmission Date: 20250716
  Serious: No
  Sender: BAYER HEALTHCARE PHARMACEUTICALS INC.
  Company Number: US-BAYER-2025A059005

PATIENT
  Age: 77 Year
  Sex: Male

DRUGS (7)
  1. CIPROFLOXACIN [Suspect]
     Active Substance: CIPROFLOXACIN
     Indication: Vascular device infection
     Route: 048
     Dates: start: 2020
  2. VANCOMYCIN [Concomitant]
     Active Substance: VANCOMYCIN
     Dates: start: 2020
  3. AZTREONAM [Concomitant]
     Active Substance: AZTREONAM
     Dates: start: 2020
  4. DAPTOMYCIN [Concomitant]
     Active Substance: DAPTOMYCIN
     Dates: start: 2020
  5. DOXYCYCLINE [Concomitant]
     Active Substance: DOXYCYCLINE
     Route: 048
     Dates: start: 2020
  6. CEFTRIAXONE [Concomitant]
     Active Substance: CEFTRIAXONE
     Dates: start: 2020
  7. CEFDINIR [Concomitant]
     Active Substance: CEFDINIR
     Dates: start: 2020

REACTIONS (2)
  - Product use in unapproved indication [None]
  - Product prescribing issue [None]

NARRATIVE: CASE EVENT DATE: 20200101
